FAERS Safety Report 9231915 (Version 1)
Quarter: 2013Q2

REPORT INFORMATION
  Report Type: Spontaneous
  Country: US (occurrence: US)
  Receive Date: 20130415
  Receipt Date: 20130415
  Transmission Date: 20140414
  Serious: Yes (Death)
  Sender: FDA-Public Use
  Company Number: US-COVIDIEN/TYCO HEALTHCARE/MALLINCKRODT-T201204626

PATIENT
  Age: 42 Year
  Sex: Female

DRUGS (3)
  1. FENTANYL CITRATE [Suspect]
     Dosage: UNK
  2. TRAMADOL [Suspect]
     Dosage: UNK
  3. HYDROCODONE/ACETAMINOPHEN [Suspect]
     Dosage: UNK

REACTIONS (1)
  - Death [Fatal]
